FAERS Safety Report 6032360-2 (Version None)
Quarter: 2008Q4

REPORT INFORMATION
  Report Type: 
  Country: None (occurrence: None)
  Receive Date: 20081222
  Receipt Date: 20081105
  Transmission Date: 20090506
  Serious: No
  Sender: FDA-Public Use
  Company Number: US-WYE-H06765708

PATIENT
  Age: 46 Year
  Sex: Female

DRUGS (7)
  1. PRISTIQ [Suspect]
     Indication: BIPOLAR DISORDER
     Dosage: 50 MG 1X PER 1 DAY, ORAL
     Route: 048
     Dates: start: 20081027
  2. PRISTIQ [Suspect]
     Indication: MAJOR DEPRESSION
     Dosage: 50 MG 1X PER 1 DAY, ORAL
     Route: 048
     Dates: start: 20081027
  3. PAXIL [Concomitant]
  4. SEROQUEL [Concomitant]
  5. CLONAZEPAM [Concomitant]
  6. DEPAKOTE [Concomitant]
  7. CLONIDINE [Concomitant]

REACTIONS (4)
  - ABDOMINAL DISTENSION [None]
  - ABDOMINAL SYMPTOM [None]
  - DRY EYE [None]
  - EYE SWELLING [None]
